FAERS Safety Report 12200507 (Version 2)
Quarter: 2017Q3

REPORT INFORMATION
  Report Type: Spontaneous
  Country: US (occurrence: US)
  Receive Date: 20160322
  Receipt Date: 20170904
  Transmission Date: 20171127
  Serious: Yes (Other)
  Sender: FDA-Public Use
  Company Number: US-ASTRAZENECA-2016SE28483

PATIENT
  Age: 887 Month
  Sex: Female
  Weight: 67.6 kg

DRUGS (4)
  1. PROAIR HFA [Concomitant]
     Active Substance: ALBUTEROL SULFATE
     Indication: CHRONIC OBSTRUCTIVE PULMONARY DISEASE
     Dosage: AS REQUIRED
     Route: 055
  2. ARMORTHYROID [Concomitant]
     Indication: THYROID DISORDER
     Route: 048
  3. TUDORZA PRESSAIR [Suspect]
     Active Substance: ACLIDINIUM BROMIDE
     Indication: CHRONIC OBSTRUCTIVE PULMONARY DISEASE
     Dosage: 400 MICROGRAMS, 60 METERED DOSE INHALER, 1 PUFF TWICE DAILY
     Route: 055
  4. DEXAMETHASONE. [Concomitant]
     Active Substance: DEXAMETHASONE
     Indication: LUNG NEOPLASM MALIGNANT
     Dosage: 2 TABLETS THE DAY BEFORE AND 2 TABLETS THE DAY AFTER HER INFUSION OF KERUDA, 4 IN EVERY 3 WEEKS
     Route: 048

REACTIONS (2)
  - Device malfunction [Unknown]
  - Lung neoplasm malignant [Unknown]

NARRATIVE: CASE EVENT DATE: 201502
